FAERS Safety Report 18245411 (Version 3)
Quarter: 2020Q4

REPORT INFORMATION
  Report Type: Report from Study
  Country: US (occurrence: US)
  Receive Date: 20200908
  Receipt Date: 20201009
  Transmission Date: 20210113
  Serious: Yes (Hospitalization, Other)
  Sender: FDA-Public Use
  Company Number: US-BRISTOL-MYERS SQUIBB COMPANY-BMS-2020-060297

PATIENT
  Age: 67 Year
  Sex: Male
  Weight: 82.2 kg

DRUGS (7)
  1. TRAMETINIB [Suspect]
     Active Substance: TRAMETINIB
     Indication: MALIGNANT MELANOMA
     Dosage: UNK
     Route: 065
     Dates: start: 20191018, end: 20200401
  2. NIVOLUMAB [Suspect]
     Active Substance: NIVOLUMAB
     Indication: MALIGNANT MELANOMA
     Dosage: 496 MILLIGRAM
     Route: 065
     Dates: start: 20200408, end: 20200610
  3. IPILIMUMAB [Suspect]
     Active Substance: IPILIMUMAB
     Indication: MALIGNANT MELANOMA
     Dosage: 166 MILLIGRAM
     Route: 065
     Dates: start: 20200408, end: 20200610
  4. NIVOLUMAB [Suspect]
     Active Substance: NIVOLUMAB
     Dosage: PATIENT WAS TO START MAINTENANCE NIVOLUMAB CYCLE 3
     Route: 065
     Dates: start: 20200701
  5. GABAPENTIN. [Suspect]
     Active Substance: GABAPENTIN
     Indication: PRODUCT USED FOR UNKNOWN INDICATION
     Route: 065
  6. HYDROCODONE BITARTRATE+PARACETAMOL [Suspect]
     Active Substance: ACETAMINOPHEN\HYDROCODONE BITARTRATE
     Indication: BACK PAIN
     Dosage: UNK
     Route: 065
     Dates: start: 20200629
  7. DABRAFENIB [Suspect]
     Active Substance: DABRAFENIB
     Indication: MALIGNANT MELANOMA
     Dosage: UNK
     Route: 065
     Dates: start: 20191018, end: 20200401

REACTIONS (8)
  - Atrial fibrillation [Unknown]
  - Syncope [Unknown]
  - Constipation [Unknown]
  - Hypophysitis [Unknown]
  - Adrenal insufficiency [Unknown]
  - Ileus [Unknown]
  - Hypothyroidism [Unknown]
  - Neuritis [Unknown]

NARRATIVE: CASE EVENT DATE: 202007
